FAERS Safety Report 16925316 (Version 1)
Quarter: 2019Q4

REPORT INFORMATION
  Report Type: Spontaneous
  Country: US (occurrence: US)
  Receive Date: 20191016
  Receipt Date: 20191016
  Transmission Date: 20200122
  Serious: Yes (Hospitalization)
  Sender: FDA-Public Use
  Company Number: None

PATIENT
  Age: 26 Year
  Sex: Female

DRUGS (15)
  1. PRAZOSIN. [Concomitant]
     Active Substance: PRAZOSIN
  2. NORETHIN ACE TAB [Concomitant]
  3. REMICADE [Suspect]
     Active Substance: INFLIXIMAB
     Indication: CROHN^S DISEASE
     Dosage: ?          OTHER FREQUENCY:EVERY 6 WEEKS;?
     Route: 042
     Dates: start: 20170329
  4. TRINTELLIX TAB [Concomitant]
  5. ATORVASTATIN [Concomitant]
     Active Substance: ATORVASTATIN
  6. OMEPRAZOLE. [Concomitant]
     Active Substance: OMEPRAZOLE
  7. CARAFATE [Concomitant]
     Active Substance: SUCRALFATE
  8. DIAZEPAM. [Concomitant]
     Active Substance: DIAZEPAM
  9. MONTELUKAST [Concomitant]
     Active Substance: MONTELUKAST SODIUM
  10. PROPRANOLOL [Concomitant]
     Active Substance: PROPRANOLOL HYDROCHLORIDE
  11. LEVOTHYROXINE. [Concomitant]
     Active Substance: LEVOTHYROXINE
  12. MESALAMINE. [Concomitant]
     Active Substance: MESALAMINE
  13. OLANZAPINE. [Concomitant]
     Active Substance: OLANZAPINE
  14. DIVALPROEX TAB [Concomitant]
  15. ZOLPIDEM [Concomitant]
     Active Substance: ZOLPIDEM TARTRATE

REACTIONS (2)
  - Skin fissures [None]
  - Abscess [None]

NARRATIVE: CASE EVENT DATE: 20191012
